FAERS Safety Report 6062736-9 (Version None)
Quarter: 2009Q1

REPORT INFORMATION
  Report Type: 
  Country: None (occurrence: None)
  Receive Date: 20090202
  Receipt Date: 20090202
  Transmission Date: 20090719
  Serious: Yes (Other)
  Sender: FDA-Public Use
  Company Number: None

PATIENT
  Age: 21 Year
  Sex: Male
  Weight: 73.4827 kg

DRUGS (1)
  1. TOPAMAX [Suspect]
     Indication: CEREBRAL VENOUS THROMBOSIS
     Dosage: 2X DAILY IV BOLUS, 2-3 2X DAILY PO
     Route: 040
     Dates: start: 20090120, end: 20090131

REACTIONS (15)
  - ABNORMAL SENSATION IN EYE [None]
  - CONVULSION [None]
  - DIPLOPIA [None]
  - DIZZINESS [None]
  - EMOTIONAL DISORDER [None]
  - FLAT AFFECT [None]
  - HYPOAESTHESIA [None]
  - INADEQUATE ANALGESIA [None]
  - INTRACRANIAL PRESSURE INCREASED [None]
  - NAUSEA [None]
  - PAIN [None]
  - PARAESTHESIA [None]
  - POSTURE ABNORMAL [None]
  - TINNITUS [None]
  - VISION BLURRED [None]
